FAERS Safety Report 6868676-7 (Version None)
Quarter: 2010Q3

REPORT INFORMATION
  Report Type: 
  Country: None (occurrence: None)
  Receive Date: 20100722
  Receipt Date: 20080714
  Transmission Date: 20110219
  Serious: Yes (Other)
  Sender: FDA-Public Use
  Company Number: US-PFIZER INC-2008048918

PATIENT
  Sex: Female

DRUGS (3)
  1. CHANTIX [Suspect]
     Indication: SMOKING CESSATION THERAPY
     Dates: start: 20080501
  2. XANAX [Concomitant]
     Indication: ANXIETY
  3. ALBUTEROL [Concomitant]
     Indication: DYSPNOEA

REACTIONS (8)
  - AGITATION [None]
  - ANGER [None]
  - APATHY [None]
  - DRUG DOSE OMISSION [None]
  - IRRITABILITY [None]
  - MOOD SWINGS [None]
  - SOCIAL AVOIDANT BEHAVIOUR [None]
  - WEIGHT INCREASED [None]
